FAERS Safety Report 4283503-2 (Version None)
Quarter: 2004Q1

REPORT INFORMATION
  Report Type: 
  Country: None (occurrence: None)
  Receive Date: 20040202
  Receipt Date: 20030806
  Transmission Date: 20041129
  Serious: No
  Sender: FDA-Public Use
  Company Number: US-BRISTOL-MYERS SQUIBB COMPANY-12348678

PATIENT
  Age: 57 Year
  Sex: Female
  Weight: 82 kg

DRUGS (11)
  1. ULTRAVATE [Suspect]
     Indication: ECZEMA
     Dosage: DOSAGE: APPLIED 3 TO 4 TIMES DAILY
     Route: 061
  2. TOPROL-XL [Concomitant]
  3. DETROL [Concomitant]
  4. DICYCLOMINE [Concomitant]
  5. BUSPAR [Concomitant]
  6. NORVASC [Concomitant]
  7. DOXEPIN [Concomitant]
  8. HYDROCHLOROTHIAZIDE [Concomitant]
  9. PREMARIN [Concomitant]
  10. VITAMIN CAP [Concomitant]
  11. ASPIRIN [Concomitant]

REACTIONS (2)
  - DRY SKIN [None]
  - ECZEMA [None]
